FAERS Safety Report 4823698-2 (Version None)
Quarter: 2005Q4

REPORT INFORMATION
  Report Type: 
  Country: None (occurrence: None)
  Receive Date: 20051109
  Receipt Date: 20051031
  Transmission Date: 20060501
  Serious: Yes (Hospitalization)
  Sender: FDA-Public Use
  Company Number: PHHO2005FR17115

PATIENT
  Age: 29 Year
  Sex: Male

DRUGS (7)
  1. NEORAL [Suspect]
     Indication: RENAL TRANSPLANT
     Dosage: UNK, UNK
     Route: 048
     Dates: start: 20050104
  2. MYCOPHENOLATE MOFETIL [Suspect]
     Indication: RENAL TRANSPLANT
     Dosage: UNK, UNK
     Route: 048
     Dates: start: 20050104
  3. DACLIZUMAB [Suspect]
     Indication: RENAL TRANSPLANT
     Dosage: UNK, ONCE/SINGLE
     Route: 042
     Dates: start: 20050118, end: 20050118
  4. DACLIZUMAB [Suspect]
     Dosage: UNK, ONCE/SINGLE
     Route: 042
     Dates: start: 20050104, end: 20050104
  5. CORTICOSTEROIDS [Suspect]
     Indication: RENAL TRANSPLANT
     Dosage: UNK, UNK
     Route: 048
     Dates: start: 20050721
  6. AMLOR [Concomitant]
     Dates: start: 20050106
  7. TENORMIN [Concomitant]
     Route: 048
     Dates: start: 20050107

REACTIONS (1)
  - LUNG DISORDER [None]
